FAERS Safety Report 10280830 (Version 4)
Quarter: 2014Q3

REPORT INFORMATION
  Report Type: Spontaneous
  Country: JP (occurrence: JP)
  Receive Date: 20140707
  Receipt Date: 20140918
  Transmission Date: 20150326
  Serious: Yes (Congenital Anomaly, Other)
  Sender: FDA-Public Use
  Company Number: JP-NOVOPROD-415143

PATIENT
  Sex: Female
  Weight: 1.38 kg

DRUGS (2)
  1. NOVORAPID [Suspect]
     Active Substance: INSULIN ASPART
     Indication: TYPE 2 DIABETES MELLITUS
     Dosage: 14 IU, QD
     Route: 064
     Dates: start: 20110714, end: 20110922
  2. LEVEMIR [Suspect]
     Active Substance: INSULIN DETEMIR
     Indication: TYPE 2 DIABETES MELLITUS
     Dosage: 3 IU, QD
     Route: 064
     Dates: start: 20110716, end: 20110922

REACTIONS (5)
  - Foetal exposure during pregnancy [Recovered/Resolved]
  - Ventricular septal defect [Recovering/Resolving]
  - Patent ductus arteriosus [Recovering/Resolving]
  - Hypoglycaemia neonatal [Recovered/Resolved]
  - Premature baby [Recovered/Resolved]

NARRATIVE: CASE EVENT DATE: 20110714
